FAERS Safety Report 9184493 (Version 2)
Quarter: 2013Q4

REPORT INFORMATION
  Report Type: Spontaneous
  Country: BR (occurrence: BR)
  Receive Date: 20130322
  Receipt Date: 20131017
  Transmission Date: 20140711
  Serious: Yes (Death)
  Sender: FDA-Public Use
  Company Number: BR-PFIZER INC-2013091508

PATIENT
  Sex: Female

DRUGS (5)
  1. SULFADIAZINE [Suspect]
     Dosage: 3 G/DAY, WEEKLY REGIMENS
     Route: 064
  2. SPIRAMYCIN [Suspect]
     Dosage: 3 G/DAY
     Route: 064
  3. SPIRAMYCIN [Suspect]
     Dosage: 3 G/DAY, WEEKLY REGIMENS
     Route: 064
  4. PYRIMETHAMINE [Suspect]
     Dosage: 50 MG/DAY
     Route: 064
  5. BETAMETHASONE [Suspect]
     Indication: PREMATURE LABOUR
     Dosage: 12 MG/DAY
     Route: 064

REACTIONS (3)
  - Septic shock [Fatal]
  - Maternal exposure during pregnancy [Unknown]
  - Atrial septal defect [Unknown]
